FAERS Safety Report 12863608 (Version 1)
Quarter: 2016Q4

REPORT INFORMATION
  Report Type: Spontaneous
  Country: US (occurrence: US)
  Receive Date: 20161019
  Receipt Date: 20161019
  Transmission Date: 20170207
  Serious: Yes (Other)
  Sender: FDA-Public Use
  Company Number: US-SAOL THERAPEUTICS-2016SAO00866

PATIENT
  Age: 25 Year
  Sex: Female

DRUGS (3)
  1. UNKNOWN INTRATHECAL PRODUCT [Suspect]
     Active Substance: UNSPECIFIED INGREDIENT
     Dosage: UNK
  2. BACLOFEN. [Suspect]
     Active Substance: BACLOFEN
     Indication: MUSCLE SPASTICITY
     Dosage: 170.2 ?G, \DAY
     Route: 037
  3. LIORESAL [Suspect]
     Active Substance: BACLOFEN
     Indication: MUSCLE SPASTICITY
     Dosage: 170 ?G, \DAY
     Route: 037

REACTIONS (10)
  - Pruritus generalised [Unknown]
  - Incorrect route of drug administration [Recovered/Resolved]
  - Device leakage [None]
  - Headache [Recovered/Resolved]
  - Formication [Unknown]
  - Infusion site extravasation [Recovered/Resolved]
  - Rash [Recovered/Resolved]
  - Vomiting [Recovered/Resolved]
  - Medical device site mass [Unknown]
  - Device malfunction [None]

NARRATIVE: CASE EVENT DATE: 201602
